FAERS Safety Report 4822696-2 (Version None)
Quarter: 2005Q4

REPORT INFORMATION
  Report Type: 
  Country: None (occurrence: None)
  Receive Date: 20051104
  Receipt Date: 20051025
  Transmission Date: 20060501
  Serious: Yes (Other)
  Sender: FDA-Public Use
  Company Number: 2004092389

PATIENT
  Age: 48 Year
  Sex: Male

DRUGS (2)
  1. MINOXIDIL [Suspect]
     Indication: HYPERTENSION
     Dosage: 5 MG (DAILY)
     Dates: start: 20020101, end: 20031001
  2. MINOXIDIL [Suspect]
     Indication: HYPERTENSION
     Dosage: 5 MG (DAILY)
     Dates: start: 20030101

REACTIONS (6)
  - DYSPNOEA PAROXYSMAL NOCTURNAL [None]
  - HAEMODIALYSIS [None]
  - OEDEMA [None]
  - PLEURAL EFFUSION [None]
  - VENTRICULAR HYPERTROPHY [None]
  - WEIGHT INCREASED [None]
